FAERS Safety Report 9140872 (Version 1)
Quarter: 2013Q1

REPORT INFORMATION
  Report Type: Not Available
  Country: FR (occurrence: FR)
  Receive Date: 20130305
  Receipt Date: 20130305
  Transmission Date: 20140127
  Serious: Yes (Hospitalization)
  Sender: FDA-Public Use
  Company Number: FR-NAPPMUNDI-GBR-2013-0013312

PATIENT
  Age: 82 Year
  Sex: Female

DRUGS (20)
  1. OXYCONTIN [Suspect]
     Indication: PAIN
     Dosage: 5 MG, BID
     Route: 048
     Dates: start: 201201, end: 20120305
  2. METOJECT [Suspect]
     Indication: PEMPHIGOID
     Dosage: 10 MG, WEEKLY
     Route: 042
     Dates: start: 201201, end: 20120202
  3. OXYNORM, GELULE [Concomitant]
     Indication: PAIN
     Dosage: UNK, PRN
     Route: 048
     Dates: start: 201201, end: 20120305
  4. PRITOR                             /01102601/ [Concomitant]
  5. AUGMENTIN                          /00756801/ [Concomitant]
     Indication: LUNG DISORDER
     Dosage: UNK
     Route: 048
     Dates: start: 20120125, end: 20120202
  6. GALVUS [Concomitant]
     Dosage: 50 MG, BID
     Route: 048
     Dates: end: 20120305
  7. STAGID [Concomitant]
     Indication: DIABETES MELLITUS
     Route: 048
  8. ESIDREX [Concomitant]
     Indication: HYPERTENSION
     Dosage: 25 MG, DAILY
     Route: 048
  9. HYPERIUM [Concomitant]
     Indication: ESSENTIAL HYPERTENSION
     Dosage: UNK
     Route: 048
     Dates: end: 20120305
  10. CETIRIZINE DIHCL [Concomitant]
     Dosage: 10 MG, DAILY
     Route: 048
     Dates: end: 20120202
  11. EUPANTOL [Concomitant]
     Indication: GASTRIC DISORDER
     Dosage: 40 MG, DAILY
     Route: 048
     Dates: end: 20120305
  12. XANAX [Concomitant]
     Indication: ANXIETY
     Dosage: UNK
     Route: 048
     Dates: start: 20120201
  13. LANTUS [Concomitant]
     Dosage: 12 IU, UNK
     Route: 058
  14. NORSET [Concomitant]
     Indication: DEPRESSION
     Route: 048
  15. ULTRA LEVURE [Concomitant]
     Dosage: UNK
     Route: 048
     Dates: end: 20120305
  16. DOLIPRANE [Concomitant]
     Dosage: UNK, PRN
     Route: 048
     Dates: end: 20120305
  17. SPECIAFOLDINE [Concomitant]
     Dosage: UNK
     Dates: end: 20120202
  18. LOCAPRED [Concomitant]
     Indication: PEMPHIGOID
     Route: 003
  19. DIPROLENE [Concomitant]
     Indication: PEMPHIGOID
     Route: 003
  20. FRACTAL [Concomitant]
     Indication: DYSLIPIDAEMIA
     Dosage: 80 MG, DAILY
     Route: 048

REACTIONS (4)
  - Fall [Recovered/Resolved]
  - Lung disorder [Recovered/Resolved]
  - Pyrexia [Recovered/Resolved]
  - Acute respiratory failure [Recovered/Resolved]
